FAERS Safety Report 19199083 (Version 2)
Quarter: 2021Q2

REPORT INFORMATION
  Report Type: Spontaneous
  Country: JP (occurrence: JP)
  Receive Date: 20210430
  Receipt Date: 20210528
  Transmission Date: 20210717
  Serious: Yes (Other)
  Sender: FDA-Public Use
  Company Number: JP-EXELIXIS-CABO-21039850

PATIENT
  Age: 76 Year
  Sex: Male
  Weight: 70 kg

DRUGS (12)
  1. CRESTOR [Concomitant]
     Active Substance: ROSUVASTATIN CALCIUM
     Indication: HYPERLIPIDAEMIA
     Dosage: 2.5 MG, QD
     Route: 048
     Dates: start: 20210215
  2. CALBLOCK [Concomitant]
     Active Substance: AZELNIDIPINE
     Indication: HYPERTENSION
     Dosage: 16 MG, QD
     Route: 048
     Dates: start: 20210215
  3. ZOLPIDEM TARTRATE. [Concomitant]
     Active Substance: ZOLPIDEM TARTRATE
     Indication: INSOMNIA
     Dosage: 5 MG, QD
     Route: 048
     Dates: start: 20210215
  4. JANUVIA [Concomitant]
     Active Substance: SITAGLIPTIN PHOSPHATE
     Indication: DIABETES MELLITUS
     Dosage: 50 MG, QD
     Route: 048
     Dates: start: 20210215
  5. CABOMETYX [Suspect]
     Active Substance: CABOZANTINIB S-MALATE
     Dosage: 20 MG, QD
     Route: 048
     Dates: start: 20210510
  6. CABOMETYX [Suspect]
     Active Substance: CABOZANTINIB S-MALATE
     Indication: RENAL CANCER
     Dosage: 20 MG, QD
     Route: 048
     Dates: start: 20210217, end: 20210331
  7. OLMESARTAN [Concomitant]
     Active Substance: OLMESARTAN
     Dosage: 20 MG, QD
     Route: 048
     Dates: start: 20210215
  8. BAYASPIRIN [Concomitant]
     Active Substance: ASPIRIN
     Indication: MYOCARDIAL INFARCTION
     Dosage: 100 MG, QD
     Route: 048
     Dates: start: 20210215
  9. BISONO [Concomitant]
     Active Substance: BISOPROLOL
     Indication: HYPERTENSION
     Dosage: 4 MG, QD
     Route: 065
     Dates: start: 20210215
  10. ACTOS [Concomitant]
     Active Substance: PIOGLITAZONE HYDROCHLORIDE
     Indication: DIABETES MELLITUS
     Dosage: 15 MG, QD
     Route: 048
     Dates: start: 20210215
  11. LANSOPRAZOLE. [Concomitant]
     Active Substance: LANSOPRAZOLE
     Indication: GASTRITIS
     Dosage: 15 MG, QD
     Route: 048
     Dates: start: 20210215
  12. EFIENT [Concomitant]
     Active Substance: PRASUGREL HYDROCHLORIDE
     Indication: HYPERTENSION
     Dosage: 3.75 MG, QD
     Route: 048
     Dates: start: 20210215

REACTIONS (1)
  - Cellulitis [Recovering/Resolving]

NARRATIVE: CASE EVENT DATE: 20210331
